FAERS Safety Report 22232447 (Version 1)
Quarter: 2023Q2

REPORT INFORMATION
  Report Type: Spontaneous
  Country: US (occurrence: None)
  Receive Date: 20230420
  Receipt Date: 20230420
  Transmission Date: 20230722
  Serious: No
  Sender: FDA-Public Use
  Company Number: US-ROCHE-3118390

PATIENT
  Sex: Male

DRUGS (1)
  1. ESBRIET [Suspect]
     Active Substance: PIRFENIDONE
     Indication: Idiopathic pulmonary fibrosis
     Dosage: ONE 801 MG TABLET, 3 TIMES PER DAY ;ONGOING: YES
     Route: 048

REACTIONS (2)
  - Rash pruritic [Recovering/Resolving]
  - Nausea [Unknown]
